FAERS Safety Report 22220982 (Version 1)
Quarter: 2023Q2

REPORT INFORMATION
  Report Type: Other
  Country: BE (occurrence: BE)
  Receive Date: 20230418
  Receipt Date: 20230418
  Transmission Date: 20230721
  Serious: Yes (Other)
  Sender: FDA-Public Use
  Company Number: BE-TAKEDA-2023TUS006099

PATIENT

DRUGS (4)
  1. DEXAMETHASONE [Suspect]
     Active Substance: DEXAMETHASONE
     Indication: Grey zone lymphoma
     Dosage: 40 MILLIGRAM
     Route: 065
     Dates: start: 20230124
  2. ADCETRIS [Suspect]
     Active Substance: BRENTUXIMAB VEDOTIN
     Indication: Grey zone lymphoma
     Dosage: UNK
     Route: 065
     Dates: start: 20230124
  3. CISPLATIN [Suspect]
     Active Substance: CISPLATIN
     Indication: Grey zone lymphoma
     Dosage: 100 MILLIGRAM/SQ. METER
     Route: 065
     Dates: start: 20230124
  4. CYTARABINE [Suspect]
     Active Substance: CYTARABINE
     Indication: Grey zone lymphoma
     Dosage: 2000 MILLIGRAM/SQ. METER
     Route: 065
     Dates: start: 20230124

REACTIONS (4)
  - Off label use [Unknown]
  - Febrile neutropenia [Recovered/Resolved]
  - Respiratory syncytial virus infection [Recovered/Resolved]
  - Stomatitis [Recovered/Resolved]

NARRATIVE: CASE EVENT DATE: 20230202
